FAERS Safety Report 10847019 (Version 3)
Quarter: 2016Q3

REPORT INFORMATION
  Report Type: Report from Study
  Country: US (occurrence: US)
  Receive Date: 20150220
  Receipt Date: 20160919
  Transmission Date: 20161109
  Serious: Yes (Hospitalization, Other)
  Sender: FDA-Public Use
  Company Number: US-ARIAD-2014US003884

PATIENT
  Age: 37 Year
  Sex: Male
  Weight: 78 kg

DRUGS (7)
  1. OTHER THERAPEUTIC PRODUCTS [Concomitant]
     Active Substance: UNSPECIFIED INGREDIENT
     Indication: PRODUCT USED FOR UNKNOWN INDICATION
     Dosage: UNK
  2. ICLUSIG [Suspect]
     Active Substance: PONATINIB
     Indication: CHRONIC MYELOID LEUKAEMIA
     Dosage: 45 MG, QD
     Route: 048
     Dates: start: 20140827, end: 20141014
  3. ICLUSIG [Suspect]
     Active Substance: PONATINIB
     Dosage: 30 MG, QD
     Route: 048
     Dates: start: 20140904
  4. ICLUSIG [Suspect]
     Active Substance: PONATINIB
     Dosage: 30 MG, QD
     Route: 048
  5. ALLOPURINOL. [Concomitant]
     Active Substance: ALLOPURINOL
     Indication: GOUT
  6. ICLUSIG [Suspect]
     Active Substance: PONATINIB
     Dosage: 45 MG, QD
     Route: 048
     Dates: start: 20140827, end: 20141014
  7. ICLUSIG [Suspect]
     Active Substance: PONATINIB
     Dosage: 45 MG, QD
     Route: 048
     Dates: start: 20140904

REACTIONS (27)
  - Disseminated intravascular coagulation [Recovered/Resolved]
  - Eosinophilia [Unknown]
  - Haemochromatosis [Unknown]
  - Stem cell transplant [Unknown]
  - Ill-defined disorder [Unknown]
  - Infection [Unknown]
  - Aplasia [Unknown]
  - Diarrhoea [Unknown]
  - Lipase increased [Unknown]
  - Acute kidney injury [Recovered/Resolved]
  - Bone marrow failure [Unknown]
  - Physical disability [Unknown]
  - Productive cough [Unknown]
  - Neutropenic sepsis [Recovered/Resolved]
  - Febrile neutropenia [Unknown]
  - Fatigue [Unknown]
  - Flank pain [Unknown]
  - White blood cell count increased [Unknown]
  - Dyspepsia [Unknown]
  - Cholelithiasis [Unknown]
  - Nausea [Unknown]
  - Pancytopenia [Unknown]
  - Blister [Not Recovered/Not Resolved]
  - Gallbladder polyp [Unknown]
  - Drug-induced liver injury [Unknown]
  - Abdominal pain upper [Unknown]
  - Pyrexia [Not Recovered/Not Resolved]

NARRATIVE: CASE EVENT DATE: 20141015
